FAERS Safety Report 4993547-0 (Version None)
Quarter: 2006Q2

REPORT INFORMATION
  Report Type: 
  Country: None (occurrence: None)
  Receive Date: 20060505
  Receipt Date: 20060405
  Transmission Date: 20061013
  Serious: Yes (Other)
  Sender: FDA-Public Use
  Company Number: 2006UW06004

PATIENT
  Age: 38 Year
  Sex: Male
  Weight: 84.1 kg

DRUGS (4)
  1. SEROQUEL [Suspect]
     Indication: BIPOLAR DISORDER
     Route: 048
     Dates: start: 20050901, end: 20060301
  2. SEROQUEL [Suspect]
     Route: 048
  3. ESKALITH CR [Concomitant]
     Indication: BIPOLAR DISORDER
     Route: 048
     Dates: start: 20010101
  4. LAMICTAL [Concomitant]
     Indication: BIPOLAR DISORDER
     Route: 048
     Dates: start: 20040901

REACTIONS (5)
  - DRUG WITHDRAWAL SYNDROME [None]
  - HYPERHIDROSIS [None]
  - NAUSEA [None]
  - TACHYCARDIA [None]
  - TREMOR [None]
